FAERS Safety Report 9537046 (Version 2)
Quarter: 2013Q4

REPORT INFORMATION
  Report Type: Spontaneous
  Country: US (occurrence: US)
  Receive Date: 20130919
  Receipt Date: 20131028
  Transmission Date: 20140711
  Serious: Yes (Hospitalization, Other)
  Sender: FDA-Public Use
  Company Number: US-PFIZER INC-2013264847

PATIENT
  Age: 69 Year
  Sex: Male

DRUGS (13)
  1. SUTENT [Suspect]
     Indication: RENAL NEOPLASM
     Dosage: 50 MG, UNK
     Dates: start: 20130702
  2. ADVAIR DISKUS [Concomitant]
     Dosage: UNK
  3. ALBUTEROL SULFATE [Concomitant]
     Dosage: UNK
  4. DILTIAZEM HYDROCHLORIDE [Concomitant]
     Dosage: UNK
  5. DOXEPIN HYDROCHLORIDE [Concomitant]
     Dosage: UNK
  6. FERROUS FUMARATE [Concomitant]
     Dosage: UNK
  7. FLOMAX [Concomitant]
     Dosage: UNK
  8. FUROSEMIDE [Concomitant]
     Dosage: UNK
  9. LANSOPRAZOLE [Concomitant]
     Dosage: UNK
  10. METOPROLOL TARTRATE [Concomitant]
     Dosage: UNK
  11. PROAIR HFA [Concomitant]
     Dosage: UNK
  12. SPIRIVA HANDIHALER [Concomitant]
     Dosage: UNK
  13. THEOPHYLLINE ER [Concomitant]
     Dosage: UNK

REACTIONS (3)
  - Pneumonia [Unknown]
  - Oral pain [Unknown]
  - Glossodynia [Unknown]
